FAERS Safety Report 16890662 (Version 1)
Quarter: 2019Q4

REPORT INFORMATION
  Report Type: Spontaneous
  Country: US (occurrence: US)
  Receive Date: 20191005
  Receipt Date: 20191005
  Transmission Date: 20200122
  Serious: Yes (Life-Threatening, Hospitalization, Disabling, Other)
  Sender: FDA-Public Use
  Company Number: None

PATIENT
  Age: 67 Year
  Sex: Female
  Weight: 59.85 kg

DRUGS (5)
  1. LEVOXYL [Concomitant]
     Active Substance: LEVOTHYROXINE SODIUM
  2. CITALOPRAM [Concomitant]
     Active Substance: CITALOPRAM HYDROBROMIDE
  3. OMEPRAZOLE. [Suspect]
     Active Substance: OMEPRAZOLE
     Indication: GASTROOESOPHAGEAL REFLUX DISEASE
     Dosage: ?          QUANTITY:1 CAPSULE(S);?
     Route: 048
  4. ACARBOSE. [Concomitant]
     Active Substance: ACARBOSE
  5. BI-WEEKLY INFUSIONS [Concomitant]

REACTIONS (3)
  - Gastrectomy [None]
  - Gastric cancer [None]
  - Gastric polyps [None]

NARRATIVE: CASE EVENT DATE: 20121221
